FAERS Safety Report 18812128 (Version 1)
Quarter: 2021Q1

REPORT INFORMATION
  Report Type: Spontaneous
  Country: JP (occurrence: JP)
  Receive Date: 20210130
  Receipt Date: 20210130
  Transmission Date: 20210419
  Serious: Yes (Hospitalization)
  Sender: FDA-Public Use
  Company Number: JP-UNICHEM PHARMACEUTICALS (USA) INC-UCM202101-000074

PATIENT
  Age: 73 Year
  Sex: Male
  Weight: 91.9 kg

DRUGS (15)
  1. APREPITANT. [Suspect]
     Active Substance: APREPITANT
     Indication: VOMITING
     Dosage: ON DAY 2 AND 3
     Route: 048
  2. RANITIDINE. [Concomitant]
     Active Substance: RANITIDINE
     Indication: PRODUCT USED FOR UNKNOWN INDICATION
     Route: 048
  3. GEMCITABINE. [Concomitant]
     Active Substance: GEMCITABINE
     Indication: SQUAMOUS CELL CARCINOMA OF LUNG
     Dosage: 1,250 MG PER M^2
  4. DEXAMETHASONE. [Concomitant]
     Active Substance: DEXAMETHASONE
     Indication: VOMITING
     Dosage: ON DAYS 2 TO 4
     Route: 048
  5. CISPLATIN. [Concomitant]
     Active Substance: CISPLATIN
     Indication: SQUAMOUS CELL CARCINOMA OF LUNG
     Dosage: 75 MG PER M^2
  6. PALONOSETRON. [Concomitant]
     Active Substance: PALONOSETRON HYDROCHLORIDE
     Indication: VOMITING
  7. DEXAMETHASONE. [Concomitant]
     Active Substance: DEXAMETHASONE
     Indication: NAUSEA
     Dosage: ON DAY 1
     Route: 042
  8. AMLODIPINE [Suspect]
     Active Substance: AMLODIPINE BESYLATE
     Indication: HYPERTENSION
     Route: 048
  9. CANDESARTAN. [Concomitant]
     Active Substance: CANDESARTAN
     Indication: DYSLIPIDAEMIA
     Route: 048
  10. SENNOSIDE [Concomitant]
     Active Substance: SENNOSIDES
     Indication: PRODUCT USED FOR UNKNOWN INDICATION
     Route: 048
  11. PALONOSETRON. [Concomitant]
     Active Substance: PALONOSETRON HYDROCHLORIDE
     Indication: NAUSEA
     Dosage: ON DAY 1
     Route: 042
  12. APREPITANT. [Suspect]
     Active Substance: APREPITANT
     Indication: NAUSEA
     Dosage: ON DAY 1
     Route: 048
  13. ATORVASTATIN [Concomitant]
     Active Substance: ATORVASTATIN
     Indication: DYSLIPIDAEMIA
     Route: 048
  14. ASPIRIN. [Concomitant]
     Active Substance: ASPIRIN
     Indication: DYSLIPIDAEMIA
     Route: 048
  15. MAGNESIUM OXIDE. [Concomitant]
     Active Substance: MAGNESIUM OXIDE
     Indication: PRODUCT USED FOR UNKNOWN INDICATION
     Route: 048

REACTIONS (3)
  - Atrioventricular block second degree [Recovered/Resolved]
  - Drug interaction [Recovered/Resolved]
  - Condition aggravated [Recovered/Resolved]
